FAERS Safety Report 18123508 (Version 2)
Quarter: 2020Q3

REPORT INFORMATION
  Report Type: Spontaneous
  Country: ID (occurrence: ID)
  Receive Date: 20200807
  Receipt Date: 20200915
  Transmission Date: 20201103
  Serious: Yes (Other)
  Sender: FDA-Public Use
  Company Number: NVSC2020ID218285

PATIENT
  Age: 37 Year
  Sex: Male

DRUGS (4)
  1. FRAIZERON [Suspect]
     Active Substance: SECUKINUMAB
     Indication: PSORIASIS
     Dosage: UNK
     Route: 065
  2. FRAIZERON [Suspect]
     Active Substance: SECUKINUMAB
     Indication: PSORIATIC ARTHROPATHY
     Dosage: UNK (MAINTENANCE THERAPY)
     Route: 065
  3. FRAIZERON [Suspect]
     Active Substance: SECUKINUMAB
     Dosage: UNK (AFTER INDUCTION, 5X 150 MG)
     Route: 058
     Dates: start: 20200130
  4. INSULIN [Concomitant]
     Active Substance: INSULIN NOS
     Indication: PRODUCT USED FOR UNKNOWN INDICATION
     Dosage: UNK
     Route: 065

REACTIONS (4)
  - Abscess soft tissue [Recovering/Resolving]
  - Reticulocyte count decreased [Unknown]
  - Haemolytic anaemia [Unknown]
  - Haemoglobin decreased [Recovering/Resolving]

NARRATIVE: CASE EVENT DATE: 202007
